FAERS Safety Report 7423436-3 (Version None)
Quarter: 2011Q2

REPORT INFORMATION
  Report Type: 
  Country: None (occurrence: None)
  Receive Date: 20110419
  Receipt Date: 20110408
  Transmission Date: 20111010
  Serious: Yes (Hospitalization)
  Sender: FDA-Public Use
  Company Number: US-ACTELION-A-US2011-45455

PATIENT

DRUGS (2)
  1. PREDNISONE [Concomitant]
  2. VENTAVIS [Suspect]
     Indication: PULMONARY ARTERIAL HYPERTENSION
     Dosage: 10 UNK, UNK
     Route: 055
     Dates: start: 20110215, end: 20110220

REACTIONS (6)
  - ASTHMA [None]
  - DYSPNOEA [None]
  - PAIN [None]
  - CHEST DISCOMFORT [None]
  - CHEST PAIN [None]
  - FLUID OVERLOAD [None]
